FAERS Safety Report 10559896 (Version 3)
Quarter: 2015Q1

REPORT INFORMATION
  Report Type: Spontaneous
  Country: US (occurrence: None)
  Receive Date: 20141030
  Receipt Date: 20150310
  Transmission Date: 20150720
  Serious: Yes (Hospitalization, Other)
  Sender: FDA-Public Use
  Company Number: US-H14001-14-01270

PATIENT
  Age: 65 Year
  Sex: Male

DRUGS (25)
  1. VELCADE [Suspect]
     Active Substance: BORTEZOMIB
     Indication: PLASMA CELL MYELOMA
     Dosage: 1.3 MG/M2 (ON DAYS 1, 4, 8 AND 11), INTRAVNEOUS (NOT OTHERWISE SPECIFIED)
     Route: 042
     Dates: start: 20100914, end: 20101112
  2. OMNICEF (CEFOTAXIME SODIUM) (UNKNOWN) [Concomitant]
  3. ADVAIR (SERETIDE) (UNKNOWN) (FLUTICASONE PROPIONATE, SALMETEROL XINAFOATE) [Concomitant]
  4. COREG (CARVEDILOL) (UNKNOWN) [Concomitant]
  5. CATAPRES (CLONIDINE) (UNKNOWN) [Concomitant]
  6. DEXAMETHASONE. [Suspect]
     Active Substance: DEXAMETHASONE
     Indication: PLASMA CELL MYELOMA
     Dosage: 20, ON DAYS 1, 4, 8 AND 11), INTRAVENOUS (NOT OTHERWISE SPECIFIED)
     Route: 042
     Dates: start: 20100914, end: 20101112
  7. POTASSIUM (POTASSIUM) (UNKNOWN) [Concomitant]
  8. CARDIZEM [Concomitant]
     Active Substance: DILTIAZEM HYDROCHLORIDE
  9. COLACE (DOCUSATE SODIUM) (UNKNOWN) [Concomitant]
  10. LISINOPRIL (LISINOPRIL) (UNKNOWN) (LISINOPRIL) [Concomitant]
     Active Substance: LISINOPRIL
  11. VITAMIN D (ERGOCALCIFEROL) (UNKNOWN) [Concomitant]
  12. PERCOCET (TYLOX /00446701) (UNKNOWN) [Concomitant]
  13. ALBUTEROL (SALBUTAMOL) (UNKNOWN) (SALBUTAMOL) [Concomitant]
  14. ZOCOR (SIMVASTATIN) (UNKNOWN) [Concomitant]
  15. ZOLOFT (SERTRALINE HYDROCHLORIDE) (UNKNOWN) [Concomitant]
  16. NEXIUM (ESOMEPRAZOLE MAGNESIUM) (UNKNOWN) [Concomitant]
  17. PHENERGAN (PROMETHAZINE) (UNKNOWN) [Concomitant]
  18. PRILOSEC (OMEPRAZOLE) (UNKNOWN) [Concomitant]
  19. HYDRODIURIL (HYDROCHLOROTHIAZIDE) (UNKNOWN) [Concomitant]
  20. ACYCLOVIR (ACICLOVIR) (UNKNOWN) [Concomitant]
  21. LOVENOX (ENOXAPARIN SODIUM) (UNKNOWN) [Concomitant]
  22. ATROVENT (IPRATROPIUM BROMIDE) (UNKNOWN) [Concomitant]
  23. AMBIEN (ZOLPIDEM TARTRATE) (UNKNOWN) [Concomitant]
  24. XANAX (ALPRAZOLAM) (UNKNOWN) [Concomitant]
  25. SINGULAIR (MONTELUKAST SODIUM) (UNKNOWN) [Concomitant]

REACTIONS (17)
  - Hypoxia [None]
  - Hypoaesthesia [None]
  - Swelling [None]
  - Weight decreased [None]
  - Haemoglobin decreased [None]
  - Back pain [None]
  - Arthralgia [None]
  - Asthenia [None]
  - Lung infiltration [None]
  - Acute kidney injury [None]
  - Blood pressure increased [None]
  - Neuropathy peripheral [None]
  - Muscle spasms [None]
  - Pain in extremity [None]
  - Drug ineffective [None]
  - Dysstasia [None]
  - Lobar pneumonia [None]

NARRATIVE: CASE EVENT DATE: 2010
